FAERS Safety Report 17039966 (Version 1)
Quarter: 2019Q4

REPORT INFORMATION
  Report Type: Report from Study
  Country: US (occurrence: US)
  Receive Date: 20191116
  Receipt Date: 20191116
  Transmission Date: 20200122
  Serious: No
  Sender: FDA-Public Use
  Company Number: US-IPSEN BIOPHARMACEUTICALS, INC.-2019-21277

PATIENT
  Age: 23 Year

DRUGS (1)
  1. DYSPORT [Suspect]
     Active Substance: ABOBOTULINUMTOXINA
     Indication: TORTICOLLIS
     Dosage: 300 (UNITS NOT SPECIFIED)- ANTEROCOLLIS (150), TORTICOLLIS (150), RETROCOLLIS AND LATEROCOLLIS (00)
     Route: 065

REACTIONS (1)
  - Muscle spasticity [Unknown]
